FAERS Safety Report 21388331 (Version 1)
Quarter: 2022Q3

REPORT INFORMATION
  Report Type: Report from Study
  Country: US (occurrence: US)
  Receive Date: 20220928
  Receipt Date: 20220928
  Transmission Date: 20221027
  Serious: Yes (Other)
  Sender: FDA-Public Use
  Company Number: US-BIOGEN-2019BI00790134

PATIENT
  Sex: Female

DRUGS (1)
  1. TECFIDERA [Suspect]
     Active Substance: DIMETHYL FUMARATE
     Indication: Multiple sclerosis
     Route: 050
     Dates: start: 20190710, end: 202208

REACTIONS (10)
  - Anaphylactic shock [Unknown]
  - Inappropriate schedule of product administration [Unknown]
  - Headache [Recovered/Resolved]
  - Nervousness [Unknown]
  - Rash papular [Recovered/Resolved]
  - Dyspnoea [Unknown]
  - Defaecation disorder [Recovered/Resolved]
  - Drug intolerance [Unknown]
  - Flushing [Unknown]
  - Vomiting [Recovered/Resolved]
